FAERS Safety Report 9732034 (Version 3)
Quarter: 2014Q1

REPORT INFORMATION
  Report Type: Spontaneous
  Country: US (occurrence: US)
  Receive Date: 20131205
  Receipt Date: 20140227
  Transmission Date: 20141002
  Serious: Yes (Other)
  Sender: FDA-Public Use
  Company Number: US-JNJFOC-20131117322

PATIENT
  Age: 46 Year
  Sex: Female
  Weight: 104.33 kg

DRUGS (18)
  1. REMICADE [Suspect]
     Indication: CROHN^S DISEASE
     Route: 042
     Dates: start: 20130222
  2. REMICADE [Suspect]
     Indication: CROHN^S DISEASE
     Route: 042
     Dates: start: 20131017, end: 20131017
  3. CLONAZEPAM [Concomitant]
     Route: 065
  4. LISINOPRIL [Concomitant]
     Route: 065
  5. ZOLOFT [Concomitant]
     Route: 048
  6. CYANOCOBALAMINE [Concomitant]
     Route: 065
  7. FOLIC ACID [Concomitant]
     Route: 065
  8. FUROSEMIDE [Concomitant]
     Route: 065
  9. ZYRTEC [Concomitant]
     Route: 065
  10. KLONOPIN [Concomitant]
     Route: 065
  11. IBUPROFEN [Concomitant]
     Route: 065
  12. ATIVAN [Concomitant]
     Indication: NAUSEA
     Route: 048
  13. DEXAMETHASONE [Concomitant]
     Route: 048
  14. LIDODERM [Concomitant]
     Route: 061
  15. OMEPRAZOLE [Concomitant]
     Route: 048
  16. OXYCONTIN [Concomitant]
     Route: 048
  17. OXYCODONE [Concomitant]
     Dosage: 10MG 2 TABLETS EACH TIME
     Route: 048
  18. PROCHLORPERAZINE [Concomitant]
     Indication: NAUSEA
     Route: 048

REACTIONS (4)
  - Adenocarcinoma pancreas [Not Recovered/Not Resolved]
  - Adrenal cyst [Unknown]
  - Diverticulum intestinal [Unknown]
  - Uterine leiomyoma [Unknown]
